FAERS Safety Report 4639933-X (Version None)
Quarter: 2005Q2

REPORT INFORMATION
  Report Type: 
  Country: None (occurrence: None)
  Receive Date: 20050415
  Receipt Date: 20050412
  Transmission Date: 20051028
  Serious: Yes (Hospitalization, Disabling, Other)
  Sender: FDA-Public Use
  Company Number: 2005039804

PATIENT
  Age: 78 Year
  Sex: Male

DRUGS (8)
  1. LIPITOR [Suspect]
     Indication: HYPERLIPIDAEMIA
     Dosage: 10 MG (1 IN 1 D), ORAL
     Route: 048
     Dates: start: 20050123, end: 20050202
  2. CANDESARTAN CILEXETIL (CANDESARTAN CILEXETIL) [Suspect]
     Indication: ACUTE MYOCARDIAL INFARCTION
     Dosage: 2 MG (1 IN 1 D), ORAL
     Route: 048
     Dates: start: 20050124, end: 20050202
  3. LANSOPRAZOLE [Suspect]
     Indication: ACUTE MYOCARDIAL INFARCTION
     Dosage: 15 MG (1 IN 1 D), ORAL
     Route: 048
     Dates: start: 20050124, end: 20050202
  4. BISOPROLOL FUMARATE [Suspect]
     Indication: ACUTE MYOCARDIAL INFARCTION
     Dosage: 2.5 MG (1 IN 1 D), ORAL
     Route: 048
     Dates: start: 20050201, end: 20050202
  5. TICLOPIDINE HCL [Concomitant]
  6. ASPIRIN [Concomitant]
  7. NICORANDIL (NICORANDIL) [Concomitant]
  8. NITROGLYCERIN [Concomitant]

REACTIONS (1)
  - RHABDOMYOLYSIS [None]
